FAERS Safety Report 12251865 (Version 4)
Quarter: 2017Q4

REPORT INFORMATION
  Report Type: Spontaneous
  Country: US (occurrence: US)
  Receive Date: 20160411
  Receipt Date: 20171025
  Transmission Date: 20180320
  Serious: Yes (Other)
  Sender: FDA-Public Use
  Company Number: US-AMGEN-USASP2016042193

PATIENT
  Age: 75 Year
  Sex: Female
  Weight: 61.23 kg

DRUGS (3)
  1. XELJANZ [Suspect]
     Active Substance: TOFACITINIB CITRATE
     Indication: RHEUMATOID ARTHRITIS
     Dosage: 5 MG, BID
     Route: 048
     Dates: start: 20160328
  2. ENBREL [Suspect]
     Active Substance: ETANERCEPT
     Indication: PRODUCT USED FOR UNKNOWN INDICATION
     Dosage: 25 MG, QWK
     Route: 065
     Dates: start: 2014, end: 2016
  3. PREDNISONE. [Suspect]
     Active Substance: PREDNISONE
     Indication: ARTHRITIS
     Dosage: 5 MG, UNK
     Route: 048

REACTIONS (9)
  - Cataract [Unknown]
  - Drug effect delayed [Unknown]
  - Drug ineffective [Unknown]
  - Drug resistance [Recovered/Resolved]
  - Loss of personal independence in daily activities [Unknown]
  - Joint swelling [Recovered/Resolved]
  - Skin papilloma [Unknown]
  - Contusion [Unknown]
  - Arthritis [Recovered/Resolved]

NARRATIVE: CASE EVENT DATE: 20171015
